FAERS Safety Report 6567980-X (Version None)
Quarter: 2010Q1

REPORT INFORMATION
  Report Type: 
  Country: None (occurrence: None)
  Receive Date: 20100127
  Receipt Date: 20100112
  Transmission Date: 20100710
  Serious: Yes (Death, Hospitalization)
  Sender: FDA-Public Use
  Company Number: KV201000016

PATIENT
  Age: 61 Year
  Sex: Male
  Weight: 101.6 kg

DRUGS (28)
  1. ISOSORBIDE MONONITRATE [Suspect]
     Indication: DRUG USE FOR UNKNOWN INDICATION
     Dosage: 30 MG, QD, ORAL
     Route: 048
  2. ISOSORBIDE MONONITRATE [Suspect]
     Indication: DRUG USE FOR UNKNOWN INDICATION
     Dosage: 60 MG, QD
  3. FUROSEMIDE [Concomitant]
  4. NEURONTIN [Concomitant]
  5. VASOTEC [Concomitant]
  6. ZETIA [Concomitant]
  7. FERROUS SULFATE TAB [Concomitant]
  8. FOLGARD (CYANOCOBALAMIN, FOLIC ACID, PYRIDOXINE HYDROCHLORIDE) [Concomitant]
  9. COREG [Concomitant]
  10. PLAVIX [Concomitant]
  11. COLACE (DOCUSATE SODIUM) [Concomitant]
  12. XANAX [Concomitant]
  13. ASPIRIN [Concomitant]
  14. LIPITOR [Concomitant]
  15. VENTOLIN [Concomitant]
  16. ALLOPURINOL [Concomitant]
  17. LANTUS [Concomitant]
  18. ZAROXOLYN [Concomitant]
  19. NITROGLYCERIN [Concomitant]
  20. NEXIUM [Concomitant]
  21. QUININE SULFATE (QUININE SULFATE) [Concomitant]
  22. POTASSIUM CHLORIDE [Concomitant]
  23. ADVAIR DISKUS 100/50 [Concomitant]
  24. ZOLOFT [Concomitant]
  25. ISORDIL [Concomitant]
  26. PHAZYME (SIMETICONE) [Concomitant]
  27. FLOMAX (MORNIFLUMATE) [Concomitant]
  28. ALDACTONE [Concomitant]

REACTIONS (22)
  - ANAEMIA [None]
  - ARRHYTHMIA [None]
  - ARTERIOSCLEROSIS [None]
  - CARDIAC ARREST [None]
  - CARDIAC FAILURE CONGESTIVE [None]
  - CONDITION AGGRAVATED [None]
  - CORONARY ARTERY DISEASE [None]
  - CORONARY ARTERY OCCLUSION [None]
  - DIABETES MELLITUS [None]
  - DYSPNOEA [None]
  - DYSPNOEA PAROXYSMAL NOCTURNAL [None]
  - MITRAL VALVE INCOMPETENCE [None]
  - MYOCARDIAL INFARCTION [None]
  - MYOCARDIAL ISCHAEMIA [None]
  - NASAL CONGESTION [None]
  - ORTHOPNOEA [None]
  - PALPITATIONS [None]
  - PRESYNCOPE [None]
  - RENAL FAILURE [None]
  - VENTRICULAR EXTRASYSTOLES [None]
  - VENTRICULAR HYPOKINESIA [None]
  - VENTRICULAR TACHYCARDIA [None]
